FAERS Safety Report 12298854 (Version 1)
Quarter: 2016Q2

REPORT INFORMATION
  Report Type: Spontaneous
  Country: None (occurrence: None)
  Receive Date: 20160422
  Receipt Date: 20160422
  Transmission Date: 20160815
  Serious: Yes (Disabling)
  Sender: FDA-Public Use
  Company Number: None

PATIENT
  Age: 26 Year
  Sex: Female
  Weight: 49.9 kg

DRUGS (1)
  1. MENTHOLATUM NIGHTTIME VAPORIZING RUB [Suspect]
     Active Substance: CAMPHOR (NATURAL)\EUCALYPTUS OIL\MENTHOL
     Indication: COUGH
     Dosage: APPLIED TO A SURFACE, USUALLY THE SKIN
     Dates: start: 20160419, end: 20160419

REACTIONS (3)
  - Application site pruritus [None]
  - Application site reaction [None]
  - Application site burn [None]

NARRATIVE: CASE EVENT DATE: 20160420
